FAERS Safety Report 11295516 (Version 2)
Quarter: 2015Q3

REPORT INFORMATION
  Report Type: Spontaneous
  Country: US (occurrence: US)
  Receive Date: 20150722
  Receipt Date: 20150916
  Transmission Date: 20151125
  Serious: No
  Sender: FDA-Public Use
  Company Number: US-ELI_LILLY_AND_COMPANY-US200902006056

PATIENT
  Age: 59 Year
  Sex: Female

DRUGS (9)
  1. FORTEO [Suspect]
     Active Substance: TERIPARATIDE
     Indication: OSTEOPOROSIS
     Dosage: 20 UG, DAILY (1/D)
     Dates: start: 20080604
  2. L-THYROXIN [Concomitant]
     Active Substance: LEVOTHYROXINE SODIUM
     Dosage: 75 UG, DAILY (1/D)
  3. VITAMIN C [Concomitant]
     Active Substance: ASCORBIC ACID
     Dosage: 1000 MG, DAILY (1/D)
  4. MAGNESIUM [Concomitant]
     Active Substance: MAGNESIUM
     Dosage: 250 MG, DAILY (1/D)
  5. EVISTA [Suspect]
     Active Substance: RALOXIFENE HYDROCHLORIDE
  6. MULTIVITAMIN [Concomitant]
     Active Substance: VITAMINS
  7. FISH OIL [Concomitant]
     Active Substance: FISH OIL
     Dosage: 1000 MG, DAILY (1/D)
  8. GLUCOSAMINE W/CHONDROITIN [Concomitant]
     Active Substance: CHONDROITIN SULFATE A\GLUCOSAMINE
     Dosage: 2 D/F, DAILY (1/D)
  9. CALCIUM W/VITAMIN D NOS [Concomitant]
     Active Substance: CALCIUM\VITAMIN D
     Dosage: 1500 MG, DAILY (1/D)

REACTIONS (3)
  - Drug ineffective [Not Recovered/Not Resolved]
  - Ill-defined disorder [Recovered/Resolved]
  - Bone density decreased [Not Recovered/Not Resolved]

NARRATIVE: CASE EVENT DATE: 20090216
